FAERS Safety Report 8606683 (Version 2)
Quarter: 2015Q1

REPORT INFORMATION
  Report Type: Spontaneous
  Country: US (occurrence: US)
  Receive Date: 20120608
  Receipt Date: 20150121
  Transmission Date: 20150721
  Serious: No
  Sender: FDA-Public Use
  Company Number: US-ASTRAZENECA-2011SE46000

PATIENT
  Age: 58 Year
  Sex: Male

DRUGS (1)
  1. PULMICORT RESPULES [Suspect]
     Active Substance: BUDESONIDE
     Route: 055

REACTIONS (3)
  - Dyspnoea [Unknown]
  - Product use issue [Not Recovered/Not Resolved]
  - Intentional product misuse [Unknown]

NARRATIVE: CASE EVENT DATE: 2014
